FAERS Safety Report 20934285 (Version 2)
Quarter: 2022Q2

REPORT INFORMATION
  Report Type: Spontaneous
  Country: CN (occurrence: CN)
  Receive Date: 20220608
  Receipt Date: 20220629
  Transmission Date: 20220721
  Serious: Yes (Other)
  Sender: FDA-Public Use
  Company Number: CN-ABBVIE-22K-035-4424797-00

PATIENT
  Age: 49 Year
  Sex: Female

DRUGS (11)
  1. VENETOCLAX [Suspect]
     Active Substance: VENETOCLAX
     Indication: Acute myeloid leukaemia
     Dosage: FIRST COURSE OF TREATMENT
     Route: 048
     Dates: start: 20200313, end: 20200319
  2. VENETOCLAX [Suspect]
     Active Substance: VENETOCLAX
     Dosage: SECOND COURSE OF TREATMENT
     Route: 048
     Dates: start: 20200420, end: 2020
  3. VENETOCLAX [Suspect]
     Active Substance: VENETOCLAX
     Dosage: THIRD COURSE OF TREATMENT
     Route: 048
     Dates: start: 20200726, end: 2020
  4. VENETOCLAX [Suspect]
     Active Substance: VENETOCLAX
     Dosage: FOURTH COURSE OF TREATMENT
     Route: 048
     Dates: start: 20201028
  5. AZACITIDINE [Suspect]
     Active Substance: AZACITIDINE
     Indication: Acute myeloid leukaemia
     Dosage: FIRST COURSE OF TREATMENT  ?D1-7
     Route: 065
     Dates: start: 20181020, end: 2018
  6. AZACITIDINE [Suspect]
     Active Substance: AZACITIDINE
     Route: 065
     Dates: start: 20181203
  7. AZACITIDINE [Suspect]
     Active Substance: AZACITIDINE
     Route: 065
     Dates: start: 20200109, end: 2020
  8. AZACITIDINE [Suspect]
     Active Substance: AZACITIDINE
     Dosage: D1-7
     Route: 065
     Dates: start: 20200313, end: 2020
  9. AZACITIDINE [Suspect]
     Active Substance: AZACITIDINE
     Dosage: 2ND COURSE OF CHEMOTHERAPY
     Route: 065
     Dates: start: 20200420, end: 2020
  10. AZACITIDINE [Suspect]
     Active Substance: AZACITIDINE
     Dosage: THIRD COURSE OF TREATMENT
     Route: 065
     Dates: start: 20200726, end: 2020
  11. AZACITIDINE [Suspect]
     Active Substance: AZACITIDINE
     Dosage: FOURTH COURSE OF TREATMENT
     Route: 065
     Dates: start: 20201028

REACTIONS (1)
  - Myelosuppression [Unknown]

NARRATIVE: CASE EVENT DATE: 20200101
